FAERS Safety Report 4438896-X (Version None)
Quarter: 2004Q3

REPORT INFORMATION
  Report Type: 
  Country: None (occurrence: None)
  Receive Date: 20040901
  Receipt Date: 20040517
  Transmission Date: 20050211
  Serious: Yes (Hospitalization)
  Sender: FDA-Public Use
  Company Number: PHRM2004FR01894

PATIENT
  Age: 70 Year
  Sex: Female

DRUGS (3)
  1. LAMISIL [Suspect]
     Indication: INTERTRIGO
     Dosage: 250 MG, QD
     Route: 048
     Dates: start: 20040301, end: 20040301
  2. ESBERIVEN [Concomitant]
  3. CANOL [Concomitant]
     Route: 048

REACTIONS (3)
  - DERMATITIS BULLOUS [None]
  - PEMPHIGUS [None]
  - PRURITUS [None]
